FAERS Safety Report 7216144-5 (Version None)
Quarter: 2011Q1

REPORT INFORMATION
  Report Type: 
  Country: None (occurrence: None)
  Receive Date: 20110107
  Receipt Date: 20101215
  Transmission Date: 20110831
  Serious: No
  Sender: FDA-Public Use
  Company Number: US-B.I. PHARMACEUTICALS,INC./RIDGEFIELD-2010-BP-14786BP

PATIENT
  Age: 70 Year
  Sex: Male

DRUGS (3)
  1. CALCIUM [Concomitant]
  2. MULTAQ [Suspect]
     Dosage: 800 MG
     Route: 048
     Dates: end: 20101214
  3. PRADAXA [Suspect]
     Indication: ATRIAL FIBRILLATION
     Dosage: 300 MG
     Route: 048
     Dates: start: 20101201, end: 20101214

REACTIONS (7)
  - CONSTIPATION [None]
  - FEELING JITTERY [None]
  - ASTHENIA [None]
  - NERVOUSNESS [None]
  - TREMOR [None]
  - MUSCULAR WEAKNESS [None]
  - HYPOTENSION [None]
